FAERS Safety Report 25855424 (Version 1)
Quarter: 2025Q3

REPORT INFORMATION
  Report Type: Spontaneous
  Country: EU (occurrence: EU)
  Receive Date: 20250927
  Receipt Date: 20250927
  Transmission Date: 20251021
  Serious: Yes (Other)
  Sender: AMGEN
  Company Number: None

PATIENT
  Age: 25 Year
  Sex: Male
  Weight: 55 kg

DRUGS (1)
  1. ADALIMUMAB [Suspect]
     Active Substance: ADALIMUMAB
     Indication: Psoriatic arthropathy
     Dosage: 40 MILLIGRAM, Q2WK
     Route: 058
     Dates: start: 20230127, end: 20250409

REACTIONS (3)
  - Psoriatic arthropathy [Recovering/Resolving]
  - Drug ineffective [Recovering/Resolving]
  - Arthralgia [Recovering/Resolving]

NARRATIVE: CASE EVENT DATE: 20250309
